FAERS Safety Report 17858106 (Version 2)
Quarter: 2020Q4

REPORT INFORMATION
  Report Type: Spontaneous
  Country: NL (occurrence: NL)
  Receive Date: 20200604
  Receipt Date: 20201021
  Transmission Date: 20210113
  Serious: Yes (Other)
  Sender: FDA-Public Use
  Company Number: NL-AMGEN-NLDSP2020087583

PATIENT
  Age: 47 Year

DRUGS (1)
  1. AIMOVIG [Suspect]
     Active Substance: ERENUMAB-AOOE
     Indication: PRODUCT USED FOR UNKNOWN INDICATION
     Dosage: 70 MG, Q4W
     Route: 065
     Dates: start: 20190412, end: 20200526

REACTIONS (7)
  - Pericarditis [Recovered/Resolved with Sequelae]
  - Electrocardiogram abnormal [Unknown]
  - COVID-19 [Unknown]
  - Palpitations [Unknown]
  - Heart rate increased [Unknown]
  - Chest pain [Unknown]
  - Fatigue [Recovered/Resolved with Sequelae]

NARRATIVE: CASE EVENT DATE: 20200504
